FAERS Safety Report 10214949 (Version 1)
Quarter: 2014Q2

REPORT INFORMATION
  Report Type: Spontaneous
  Country: NO (occurrence: NO)
  Receive Date: 20140603
  Receipt Date: 20140603
  Transmission Date: 20141212
  Serious: Yes (Other)
  Sender: FDA-Public Use
  Company Number: NO-PFIZER INC-2014150981

PATIENT
  Age: 34 Year
  Sex: Female

DRUGS (2)
  1. SALAZOPYRIN EN [Suspect]
     Indication: PSORIATIC ARTHROPATHY
     Dosage: 1 G, 2X/DAY
     Route: 048
     Dates: start: 20130801, end: 20140430
  2. FOLSYRE NAF [Concomitant]
     Dosage: 1 MG, 1X/DAY
     Route: 048
     Dates: start: 20130801

REACTIONS (1)
  - Abortion missed [Recovered/Resolved]
